FAERS Safety Report 24580077 (Version 1)
Quarter: 2024Q4

REPORT INFORMATION
  Report Type: Spontaneous
  Country: US (occurrence: None)
  Receive Date: 20241104
  Receipt Date: 20241104
  Transmission Date: 20250115
  Serious: Yes (Hospitalization)
  Sender: Public
  Company Number: None

PATIENT
  Sex: Female

DRUGS (2)
  1. ZELBORAF [Suspect]
     Active Substance: VEMURAFENIB
     Indication: Metastases to central nervous system
     Dosage: 720 MG BID ORAL
     Route: 048
     Dates: start: 20241010
  2. COTELLIC [Suspect]
     Active Substance: COBIMETINIB
     Indication: Metastases to central nervous system
     Dosage: 60 MG DAILY FOR 21 DAYS ORAL?
     Route: 048
     Dates: start: 20241011

REACTIONS (2)
  - Adverse drug reaction [None]
  - Therapy interrupted [None]
